FAERS Safety Report 9776110 (Version 1)
Quarter: 2013Q4

REPORT INFORMATION
  Report Type: Spontaneous
  Country: US (occurrence: US)
  Receive Date: 20131220
  Receipt Date: 20131220
  Transmission Date: 20140711
  Serious: Yes (Life-Threatening, Hospitalization, Other)
  Sender: FDA-Public Use
  Company Number: US-ENDO PHARMACEUTICALS INC.-PRED20130082

PATIENT
  Age: 2 Year
  Sex: Female

DRUGS (4)
  1. PREDNISONE TABLETS [Suspect]
     Indication: EPILEPSY
     Dosage: UNKNOWN
     Route: 048
     Dates: start: 200902
  2. PREDNISONE TABLETS [Suspect]
     Dosage: UNKNOWN
     Route: 048
  3. PREDNISONE TABLETS [Suspect]
     Dosage: UNKNOWN
     Route: 048
  4. KEPPRA [Concomitant]
     Indication: EPILEPSY
     Dosage: UNKNOWN
     Route: 065

REACTIONS (7)
  - Sepsis [Recovered/Resolved]
  - Psychotic disorder [Recovered/Resolved]
  - Crying [Unknown]
  - Screaming [Unknown]
  - Insomnia [Unknown]
  - Weight increased [Unknown]
  - Drug ineffective for unapproved indication [Recovered/Resolved]
